FAERS Safety Report 7082773-5 (Version None)
Quarter: 2010Q4

REPORT INFORMATION
  Report Type: 
  Country: None (occurrence: None)
  Receive Date: 20101104
  Receipt Date: 20101102
  Transmission Date: 20110411
  Serious: Yes (Other)
  Sender: FDA-Public Use
  Company Number: DE-SANOFI-AVENTIS-2010SA062552

PATIENT
  Age: 69 Year
  Sex: Female
  Weight: 82 kg

DRUGS (3)
  1. ARAVA [Suspect]
     Route: 048
     Dates: start: 20091201, end: 20100301
  2. METHOTREXAT [Suspect]
     Route: 058
     Dates: start: 20070801, end: 20100301
  3. AZATHIOPRINE [Suspect]
     Route: 065
     Dates: start: 20080501, end: 20090901

REACTIONS (1)
  - BRONCHIAL CARCINOMA [None]
